FAERS Safety Report 7562689-8 (Version None)
Quarter: 2011Q2

REPORT INFORMATION
  Report Type: 
  Country: None (occurrence: None)
  Receive Date: 20110622
  Receipt Date: 20110616
  Transmission Date: 20111010
  Serious: Yes (Hospitalization, Other)
  Sender: FDA-Public Use
  Company Number: DK-PFIZER INC-2011111097

PATIENT
  Age: 59 Year
  Sex: Male
  Weight: 80 kg

DRUGS (5)
  1. LYRICA [Suspect]
     Dosage: 75 MG, UNK
  2. TOLMIN [Concomitant]
     Indication: SLEEP DISORDER
     Dosage: UNK
     Dates: start: 20071023
  3. LYRICA [Suspect]
     Dosage: 150 MG
  4. LYRICA [Suspect]
     Indication: ANXIETY
     Dosage: 300 MG, 2X/DAY
     Dates: start: 20091110, end: 20110614
  5. SERTRALINE [Concomitant]
     Indication: ANXIETY
     Dosage: 150 MG, UNK
     Dates: start: 20090302

REACTIONS (4)
  - CONCUSSION [None]
  - BLOOD PRESSURE DECREASED [None]
  - FALL [None]
  - DIZZINESS [None]
